FAERS Safety Report 12652987 (Version 9)
Quarter: 2018Q1

REPORT INFORMATION
  Report Type: Spontaneous
  Country: US (occurrence: US)
  Receive Date: 20160815
  Receipt Date: 20180220
  Transmission Date: 20180508
  Serious: Yes (Congenital Anomaly, Other)
  Sender: FDA-Public Use
  Company Number: PHEH2016US020312

PATIENT
  Sex: Female

DRUGS (2)
  1. ZOFRAN ODT [Suspect]
     Active Substance: ONDANSETRON HYDROCHLORIDE
     Indication: FOETAL EXPOSURE DURING PREGNANCY
     Route: 064
  2. ZOFRAN [Suspect]
     Active Substance: ONDANSETRON HYDROCHLORIDE
     Indication: FOETAL EXPOSURE DURING PREGNANCY
     Dosage: MOTHER^S DOSE: 4 MG, TID
     Route: 064

REACTIONS (19)
  - Abdominal pain [Unknown]
  - Fatigue [Unknown]
  - Dizziness [Unknown]
  - Talipes [Unknown]
  - Orthostatic intolerance [Unknown]
  - Autonomic nervous system imbalance [Unknown]
  - Acne [Unknown]
  - Depression [Unknown]
  - Pharyngitis [Unknown]
  - Anxiety [Unknown]
  - Foetal exposure during pregnancy [Unknown]
  - Thrombocytosis [Unknown]
  - Rhinitis allergic [Unknown]
  - Riley-Day syndrome [Unknown]
  - Postural orthostatic tachycardia syndrome [Unknown]
  - Decreased appetite [Unknown]
  - Orthostatic hypotension [Unknown]
  - Dyspepsia [Unknown]
  - Syncope [Unknown]
